FAERS Safety Report 16333633 (Version 2)
Quarter: 2019Q2

REPORT INFORMATION
  Report Type: Spontaneous
  Country: PL (occurrence: PL)
  Receive Date: 20190520
  Receipt Date: 20190603
  Transmission Date: 20190711
  Serious: Yes (Other)
  Sender: FDA-Public Use
  Company Number: PL-BAXTER-2019BAX009875

PATIENT
  Sex: Female

DRUGS (13)
  1. RITUXIMAB. [Suspect]
     Active Substance: RITUXIMAB
     Dosage: R-CHOP (3-CYCLES)
     Route: 065
     Dates: start: 201803, end: 201806
  2. DOXORUBICIN [Suspect]
     Active Substance: DOXORUBICIN
     Indication: CHRONIC LYMPHOCYTIC LEUKAEMIA
     Dosage: R-CHOP (3 CYCLES)
     Route: 065
     Dates: start: 201803, end: 201806
  3. RITUXIMAB. [Suspect]
     Active Substance: RITUXIMAB
     Indication: CHRONIC LYMPHOCYTIC LEUKAEMIA
     Dosage: R-FC CHEMOTHERAPY
     Route: 065
     Dates: start: 201301
  4. VINCRISTINE [Suspect]
     Active Substance: VINCRISTINE
     Indication: CHRONIC LYMPHOCYTIC LEUKAEMIA
     Dosage: R-CHOP (3-CYCLES)
     Route: 065
     Dates: start: 201803, end: 201806
  5. PREDNISONE. [Suspect]
     Active Substance: PREDNISONE
     Indication: CHRONIC LYMPHOCYTIC LEUKAEMIA
     Dosage: R-CHOP (3-CYCLES)
     Route: 065
     Dates: start: 201803, end: 201806
  6. ENDOXAN [Suspect]
     Active Substance: CYCLOPHOSPHAMIDE
     Dosage: R-CHOP (3-CYCLES)
     Route: 065
     Dates: start: 201803, end: 201806
  7. RITUXIMAB. [Suspect]
     Active Substance: RITUXIMAB
     Dosage: WITH BENDAMUSTINE
     Route: 065
     Dates: start: 201511
  8. ENDOXAN [Suspect]
     Active Substance: CYCLOPHOSPHAMIDE
     Indication: CHRONIC LYMPHOCYTIC LEUKAEMIA
     Dosage: FC CHEMOTHERAPY
     Route: 065
     Dates: start: 201201
  9. FLUDARABINE [Concomitant]
     Active Substance: FLUDARABINE PHOSPHATE
     Dosage: R-FC CHEMOTHERAPY
     Route: 065
     Dates: start: 201301
  10. FLUDARABINE [Concomitant]
     Active Substance: FLUDARABINE PHOSPHATE
     Indication: CHRONIC LYMPHOCYTIC LEUKAEMIA
     Dosage: FC CHEMOTHERAPY
     Route: 065
     Dates: start: 201201
  11. BENDAMUSTINE [Concomitant]
     Active Substance: BENDAMUSTINE
     Indication: CHRONIC LYMPHOCYTIC LEUKAEMIA
     Dosage: WITH RITUXIMAB
     Route: 065
     Dates: start: 201511
  12. BENDAMUSTINE [Concomitant]
     Active Substance: BENDAMUSTINE
     Dosage: MONOTHERAPY
     Route: 065
     Dates: start: 201705, end: 201710
  13. ENDOXAN [Suspect]
     Active Substance: CYCLOPHOSPHAMIDE
     Dosage: R-FC CHEMOTHERAPY
     Route: 065
     Dates: start: 201301

REACTIONS (1)
  - Therapy partial responder [Unknown]
